FAERS Safety Report 7722247-9 (Version None)
Quarter: 2011Q3

REPORT INFORMATION
  Report Type: 
  Country: None (occurrence: None)
  Receive Date: 20110831
  Receipt Date: 20110824
  Transmission Date: 20111222
  Serious: Yes (Death, Other)
  Sender: FDA-Public Use
  Company Number: KR-ELI_LILLY_AND_COMPANY-KR201012004975

PATIENT
  Age: 66 Year
  Sex: Male

DRUGS (3)
  1. HUMALOG MIX 75/25 [Suspect]
     Indication: TYPE 2 DIABETES MELLITUS
     Dosage: 20 U, EACH MORNING
     Dates: start: 20101204, end: 20101219
  2. HUMALOG MIX 75/25 [Suspect]
     Dosage: 22 U, EACH EVENING
     Dates: start: 20101204, end: 20101219
  3. HUMALOG MIX 75/25 [Suspect]
     Dosage: 22 U, MIDDAY
     Dates: start: 20101204, end: 20101219

REACTIONS (2)
  - DYSPNOEA [None]
  - GLIOBLASTOMA MULTIFORME [None]
